FAERS Safety Report 18843784 (Version 1)
Quarter: 2021Q1

REPORT INFORMATION
  Report Type: Spontaneous
  Country: DE (occurrence: DE)
  Receive Date: 20210203
  Receipt Date: 20210203
  Transmission Date: 20210419
  Serious: No
  Sender: FDA-Public Use
  Company Number: DE-EXELIXIS-CABO-20028073

PATIENT
  Age: 13 Year
  Sex: Male
  Weight: 38 kg

DRUGS (1)
  1. CABOMETYX [Suspect]
     Active Substance: CABOZANTINIB S-MALATE
     Indication: OSTEOSARCOMA
     Dosage: 40 MG, QD
     Dates: start: 201909

REACTIONS (2)
  - Adverse drug reaction [Unknown]
  - Off label use [Unknown]
